FAERS Safety Report 5498492-2 (Version None)
Quarter: 2007Q4

REPORT INFORMATION
  Report Type: 
  Country: None (occurrence: None)
  Receive Date: 20071025
  Receipt Date: 20071025
  Transmission Date: 20080405
  Serious: Yes (Hospitalization)
  Sender: FDA-Public Use
  Company Number: None

PATIENT
  Sex: Female
  Weight: 89.8122 kg

DRUGS (6)
  1. ENBREL [Suspect]
     Indication: RHEUMATOID ARTHRITIS
     Dosage: 50 MG 1X WEEK SQ
     Route: 058
     Dates: start: 20070201
  2. METHOTREXATE [Concomitant]
  3. VOLTAREN [Concomitant]
  4. PROTONIX [Concomitant]
  5. FOLIC ACID [Concomitant]
  6. ASTHMA INHALER [Concomitant]

REACTIONS (2)
  - ABSCESS [None]
  - APPENDICITIS PERFORATED [None]
